FAERS Safety Report 14893451 (Version 1)
Quarter: 2018Q2

REPORT INFORMATION
  Report Type: Spontaneous
  Country: US (occurrence: US)
  Receive Date: 20180514
  Receipt Date: 20180514
  Transmission Date: 20180711
  Serious: No
  Sender: FDA-Public Use
  Company Number: US-AKRON, INC.-2047719

PATIENT
  Age: 87 Year
  Sex: Male

DRUGS (2)
  1. CLOBETASOL PROPIONATE OINTMENT [Suspect]
     Active Substance: CLOBETASOL PROPIONATE
     Route: 061
  2. PREDNISONE. [Concomitant]
     Active Substance: PREDNISONE

REACTIONS (3)
  - Skin exfoliation [Unknown]
  - Skin burning sensation [Unknown]
  - Pruritus [Unknown]
